FAERS Safety Report 21696088 (Version 1)
Quarter: 2022Q4

REPORT INFORMATION
  Report Type: Spontaneous
  Country: US (occurrence: US)
  Receive Date: 20221207
  Receipt Date: 20221207
  Transmission Date: 20230112
  Serious: No
  Sender: FDA-Public Use
  Company Number: US-MYLANLABS-2022M1129420

PATIENT
  Sex: Female
  Weight: 104 kg

DRUGS (1)
  1. SEMGLEE (INSULIN GLARGINE-YFGN) [Suspect]
     Active Substance: INSULIN GLARGINE-YFGN
     Indication: Diabetes mellitus
     Dosage: 80 INTERNATIONAL UNIT, QD (APPLIED 80 UNITS TWO SHOTS A DAY)
     Route: 058
     Dates: start: 202210

REACTIONS (4)
  - Blood insulin increased [Unknown]
  - Fatigue [Unknown]
  - Incorrect dose administered [Unknown]
  - Device issue [Unknown]
